FAERS Safety Report 5221417-1 (Version None)
Quarter: 2007Q1

REPORT INFORMATION
  Report Type: 
  Country: None (occurrence: None)
  Receive Date: 20070126
  Receipt Date: 20070119
  Transmission Date: 20070707
  Serious: Yes (Hospitalization)
  Sender: FDA-Public Use
  Company Number: US-SHR-US-2006-031632

PATIENT
  Age: 54 Year
  Sex: Male

DRUGS (3)
  1. BETAPACE [Suspect]
     Dosage: 80 MG, UNK
     Route: 048
     Dates: start: 20061009, end: 20061001
  2. AVAPRO [Concomitant]
     Dosage: 150 MG, 1X/DAY
  3. COUMADIN [Concomitant]

REACTIONS (3)
  - CONFUSIONAL STATE [None]
  - HEMIPARESIS [None]
  - SPEECH DISORDER [None]
